FAERS Safety Report 12379642 (Version 1)
Quarter: 2016Q2

REPORT INFORMATION
  Report Type: Spontaneous
  Country: CA (occurrence: CA)
  Receive Date: 20160518
  Receipt Date: 20160518
  Transmission Date: 20160815
  Serious: Yes (Other)
  Sender: FDA-Public Use
  Company Number: CA-TEVA-658968ACC

PATIENT
  Age: 62 Year
  Sex: Female

DRUGS (1)
  1. TEVA PANTOPRAZOLE MAGNESIUM [Suspect]
     Active Substance: PANTOPRAZOLE MAGNESIUM
     Indication: PRODUCT USED FOR UNKNOWN INDICATION
     Dosage: 40 MG, ONE DOSE TAKEN
     Route: 048

REACTIONS (3)
  - Haematemesis [Unknown]
  - Product substitution issue [Unknown]
  - Product quality issue [None]
